FAERS Safety Report 20482727 (Version 1)
Quarter: 2022Q1

REPORT INFORMATION
  Report Type: Spontaneous
  Country: US (occurrence: US)
  Receive Date: 20220217
  Receipt Date: 20220217
  Transmission Date: 20220423
  Serious: Yes (Other)
  Sender: FDA-Public Use
  Company Number: US-LUOXINA-LUOX-PHC-2022-FEB-15-LIT-0005

PATIENT
  Age: 70 Year
  Sex: Male

DRUGS (2)
  1. TOBRAMYCIN [Suspect]
     Active Substance: TOBRAMYCIN
     Indication: Device related infection
     Route: 065
  2. VANCOMYCIN [Concomitant]
     Active Substance: VANCOMYCIN
     Route: 065

REACTIONS (9)
  - Acute kidney injury [Unknown]
  - Nephropathy toxic [Unknown]
  - Drug level increased [None]
  - Acute kidney injury [None]
  - Blood creatinine increased [None]
  - Hypoosmolar state [None]
  - Toxicity to various agents [None]
  - Procedural haemorrhage [None]
  - Hypotension [None]
